FAERS Safety Report 5661638-7 (Version None)
Quarter: 2008Q1

REPORT INFORMATION
  Report Type: 
  Country: None (occurrence: None)
  Receive Date: 20080312
  Receipt Date: 20080218
  Transmission Date: 20080703
  Serious: Yes (Other)
  Sender: FDA-Public Use
  Company Number: DE-BAYER-DE-2007-043342

PATIENT
  Age: 66 Year
  Sex: Female

DRUGS (1)
  1. ULTRAVIST 300 [Suspect]
     Indication: COMPUTERISED TOMOGRAM
     Dosage: TOTAL DAILY DOSE: 120 ML
     Route: 042
     Dates: start: 20071112, end: 20071112

REACTIONS (4)
  - BLOOD PRESSURE INCREASED [None]
  - CHILLS [None]
  - PRURITUS [None]
  - URTICARIA [None]
